FAERS Safety Report 9034859 (Version 1)
Quarter: 2013Q1

REPORT INFORMATION
  Report Type: Spontaneous
  Country: AR (occurrence: AR)
  Receive Date: 20130128
  Receipt Date: 20130128
  Transmission Date: 20140127
  Serious: Yes (Other)
  Sender: FDA-Public Use
  Company Number: PHHY2013AR007768

PATIENT
  Sex: Male

DRUGS (1)
  1. RASILEZ D [Suspect]
     Indication: HYPERTENSION
     Dosage: 1 DF (300 MG ALISK/ 12,5 MG HYDRO), DAILY
     Route: 048

REACTIONS (1)
  - Osteoarthritis [Recovering/Resolving]
